FAERS Safety Report 5040669-4 (Version None)
Quarter: 2006Q2

REPORT INFORMATION
  Report Type: 
  Country: None (occurrence: None)
  Receive Date: 20060629
  Receipt Date: 20060629
  Transmission Date: 20061013
  Serious: Yes (Disabling)
  Sender: FDA-Public Use
  Company Number: None

PATIENT
  Sex: Female
  Weight: 105.6881 kg

DRUGS (8)
  1. COZAAR [Suspect]
     Indication: HYPERTENSION
     Dosage: 25MG ONCE DAILY ORALLY
     Route: 048
     Dates: start: 20051221, end: 20060109
  2. BENAZEPRIL, 10 MG , RANBAXY [Suspect]
     Indication: HYPERTENSION
     Dosage: 10 MG ONCE DAILY ORALLY
     Route: 048
     Dates: start: 20060118, end: 20060201
  3. NIFEDIPINE [Concomitant]
  4. LOPRESSOR [Concomitant]
  5. HYDROCHLOROTHIAZIDE [Concomitant]
  6. INSULIN [Concomitant]
  7. METFORMIN [Concomitant]
  8. LOVASTATIN [Concomitant]

REACTIONS (2)
  - BACK PAIN [None]
  - PAIN IN EXTREMITY [None]
